FAERS Safety Report 7297110-0 (Version None)
Quarter: 2011Q1

REPORT INFORMATION
  Report Type: 
  Country: None (occurrence: None)
  Receive Date: 20110216
  Receipt Date: 20110214
  Transmission Date: 20110831
  Serious: Yes (Other)
  Sender: FDA-Public Use
  Company Number: US-PFIZER INC-2011032970

PATIENT
  Sex: Female
  Weight: 58.957 kg

DRUGS (5)
  1. PROGRAF [Concomitant]
     Indication: IMMUNOSUPPRESSANT DRUG THERAPY
     Dosage: 0.5 MG, 1X/DAY
     Route: 048
  2. VASOTEC [Concomitant]
     Indication: HYPERTENSION
     Dosage: 20 MG, 2X/DAY
     Route: 048
  3. VITAMIN D [Concomitant]
     Dosage: UNK
  4. EFFEXOR XR [Suspect]
     Indication: ANXIETY
     Dosage: 150 MG, 1X/DAY
     Route: 048
     Dates: start: 20110203, end: 20110205
  5. SYNTHROID [Concomitant]
     Indication: THYROID DISORDER
     Dosage: 150 UG, 1X/DAY
     Route: 048

REACTIONS (7)
  - ANXIETY [None]
  - HALLUCINATION [None]
  - DYSKINESIA [None]
  - INSOMNIA [None]
  - AGITATION [None]
  - RESTLESSNESS [None]
  - FRUSTRATION [None]
